FAERS Safety Report 8058832-7 (Version None)
Quarter: 2012Q1

REPORT INFORMATION
  Report Type: 
  Country: None (occurrence: None)
  Receive Date: 20120120
  Receipt Date: 20111213
  Transmission Date: 20120608
  Serious: No
  Sender: FDA-Public Use
  Company Number: US-BRISTOL-MYERS SQUIBB COMPANY-16272973

PATIENT
  Age: 45 Year
  Sex: Male

DRUGS (1)
  1. YERVOY [Suspect]
     Indication: MALIGNANT MELANOMA
     Dosage: 2ND THERAPY ON 30AUG2011
     Route: 042
     Dates: start: 20110809, end: 20110101

REACTIONS (6)
  - HAEMATOCHEZIA [None]
  - NAUSEA [None]
  - DIARRHOEA [None]
  - VOMITING [None]
  - FATIGUE [None]
  - ABDOMINAL PAIN [None]
